FAERS Safety Report 14818271 (Version 2)
Quarter: 2018Q2

REPORT INFORMATION
  Report Type: Spontaneous
  Country: US (occurrence: US)
  Receive Date: 20180427
  Receipt Date: 20180521
  Transmission Date: 20180711
  Serious: No
  Sender: FDA-Public Use
  Company Number: US-BIOGEN-2018BI00546867

PATIENT
  Sex: Female

DRUGS (2)
  1. IBUPROFEN. [Concomitant]
     Active Substance: IBUPROFEN
     Indication: FLUSHING
     Route: 065
  2. AVONEX [Suspect]
     Active Substance: INTERFERON BETA-1A
     Indication: MULTIPLE SCLEROSIS
     Dosage: INJECT 30 MCG INTRAMUSCULARLY ONCE WEEKLY
     Route: 030
     Dates: start: 20090731, end: 20151204

REACTIONS (7)
  - Injection site pain [Unknown]
  - Flushing [Unknown]
  - Oral mucosal blistering [Unknown]
  - Pyrexia [Unknown]
  - Abnormal dreams [Unknown]
  - Hypersensitivity [Unknown]
  - Influenza like illness [Unknown]
